FAERS Safety Report 18284479 (Version 1)
Quarter: 2020Q3

REPORT INFORMATION
  Report Type: Spontaneous
  Country: US (occurrence: US)
  Receive Date: 20200918
  Receipt Date: 20200918
  Transmission Date: 20201103
  Serious: No
  Sender: FDA-Public Use
  Company Number: US-ASTRAZENECA-2020SF07014

PATIENT
  Age: 20514 Day
  Sex: Female

DRUGS (1)
  1. FARXIGA [Suspect]
     Active Substance: DAPAGLIFLOZIN PROPANEDIOL
     Dosage: UNKNOWN
     Route: 048

REACTIONS (3)
  - Haemoglobin increased [Unknown]
  - Haematocrit increased [Unknown]
  - Dehydration [Unknown]

NARRATIVE: CASE EVENT DATE: 20200320
